FAERS Safety Report 20105233 (Version 5)
Quarter: 2022Q1

REPORT INFORMATION
  Report Type: Report from Study
  Country: EG (occurrence: EG)
  Receive Date: 20211124
  Receipt Date: 20220202
  Transmission Date: 20220423
  Serious: Yes (Hospitalization, Other)
  Sender: FDA-Public Use
  Company Number: EG-NOVARTISPH-NVSC2021EG252517

PATIENT
  Age: 46 Year
  Sex: Female

DRUGS (7)
  1. GILENYA [Suspect]
     Active Substance: FINGOLIMOD HYDROCHLORIDE
     Indication: Multiple sclerosis
     Dosage: 0.5 MG, QD
     Route: 048
     Dates: start: 20210703
  2. GILENYA [Suspect]
     Active Substance: FINGOLIMOD HYDROCHLORIDE
     Dosage: 0.5 MG, QD
     Route: 048
     Dates: start: 20210711, end: 20211215
  3. BONE CARE [Concomitant]
     Active Substance: ATRACTYLODES LANCEA ROOT
     Indication: Nutritional supplementation
     Dosage: 1 DOSAGE FORM, QD
     Route: 048
     Dates: start: 201910
  4. BONE CARE [Concomitant]
     Active Substance: ATRACTYLODES LANCEA ROOT
     Indication: Vitamin D
     Dosage: UNK, QD
     Route: 065
     Dates: start: 2019
  5. GABTIN [Concomitant]
     Indication: Nerve injury
     Dosage: 400 UNK, QD
     Route: 048
     Dates: start: 201910
  6. GABTIN [Concomitant]
     Indication: Hypoaesthesia
     Dosage: UNK, QD
     Route: 065
     Dates: start: 2019
  7. CORTISONE [Concomitant]
     Active Substance: CORTISONE
     Indication: Product used for unknown indication
     Dosage: UNK
     Route: 048
     Dates: start: 20211106

REACTIONS (11)
  - Multiple sclerosis relapse [Recovered/Resolved]
  - Hypoaesthesia [Recovered/Resolved]
  - Urinary incontinence [Recovered/Resolved]
  - Pain [Recovered/Resolved]
  - Dizziness [Recovered/Resolved]
  - Anaemia [Unknown]
  - Hepatic enzyme abnormal [Unknown]
  - Multiple sclerosis relapse [Recovered/Resolved]
  - Limb discomfort [Recovering/Resolving]
  - Micturition urgency [Recovering/Resolving]
  - Hepatic enzyme increased [Unknown]

NARRATIVE: CASE EVENT DATE: 20211024
